FAERS Safety Report 10531498 (Version 1)
Quarter: 2014Q4

REPORT INFORMATION
  Report Type: Spontaneous
  Country: ZA (occurrence: ZA)
  Receive Date: 20141021
  Receipt Date: 20141021
  Transmission Date: 20150529
  Serious: Yes (Other)
  Sender: FDA-Public Use
  Company Number: PHHY2014ZA137144

PATIENT
  Age: 56 Year
  Sex: Female
  Weight: 46.5 kg

DRUGS (6)
  1. ELTROXIN [Concomitant]
     Active Substance: LEVOTHYROXINE
     Dosage: 1 DF, QD
     Route: 065
  2. CYMBALTA [Concomitant]
     Active Substance: DULOXETINE HYDROCHLORIDE
     Dosage: 1 DF, UNK
     Route: 065
  3. XANOR [Concomitant]
     Active Substance: ALPRAZOLAM
     Dosage: 2 DF, QD
     Route: 065
  4. MOLIPAXIN [Concomitant]
     Active Substance: TRAZODONE HYDROCHLORIDE
     Dosage: 1 DF, QD
     Route: 065
  5. FEMARA [Suspect]
     Active Substance: LETROZOLE
     Indication: BREAST CANCER STAGE II
     Dosage: UNK
     Route: 065
     Dates: start: 201211
  6. AKRINOR [Concomitant]
     Active Substance: CAFEDRINE HYDROCHLORIDE\THEODRENALINE
     Dosage: 1 DF, QD
     Route: 065

REACTIONS (6)
  - Asthenia [Unknown]
  - Weight decreased [Recovering/Resolving]
  - Irritable bowel syndrome [Unknown]
  - Gastroenteritis viral [Recovered/Resolved]
  - Pneumonia [Unknown]
  - Diarrhoea [Recovered/Resolved]

NARRATIVE: CASE EVENT DATE: 201302
